FAERS Safety Report 16032029 (Version 4)
Quarter: 2019Q2

REPORT INFORMATION
  Report Type: Spontaneous
  Country: US (occurrence: US)
  Receive Date: 20190304
  Receipt Date: 20190506
  Transmission Date: 20190711
  Serious: No
  Sender: FDA-Public Use
  Company Number: US-PFIZER INC-2019079927

PATIENT
  Age: 70 Year
  Sex: Female
  Weight: 61.23 kg

DRUGS (1)
  1. PREMARIN [Suspect]
     Active Substance: ESTROGENS, CONJUGATED
     Indication: VULVOVAGINAL BURNING SENSATION
     Dosage: APPLIED A PEA SIZE ON THE VAGINAL OPENING, THREE TIMES WEEKLY
     Route: 067
     Dates: start: 20190215, end: 20190215

REACTIONS (8)
  - Wrong technique in product usage process [Unknown]
  - Product use issue [Unknown]
  - Intentional product use issue [Unknown]
  - Weight decreased [Unknown]
  - Vulvovaginal burning sensation [Unknown]
  - Body height decreased [Unknown]
  - Drug ineffective [Not Recovered/Not Resolved]
  - Vulvovaginal discomfort [Unknown]

NARRATIVE: CASE EVENT DATE: 20190215
